FAERS Safety Report 25343736 (Version 1)
Quarter: 2025Q2

REPORT INFORMATION
  Report Type: Spontaneous
  Country: VN (occurrence: VN)
  Receive Date: 20250521
  Receipt Date: 20250521
  Transmission Date: 20250716
  Serious: Yes (Hospitalization)
  Sender: EISAI
  Company Number: VN-Eisai-EC-2025-189597

PATIENT
  Age: 57 Year
  Sex: Female

DRUGS (2)
  1. HALAVEN [Suspect]
     Active Substance: ERIBULIN MESYLATE
     Indication: Breast cancer metastatic
     Dates: start: 20241004, end: 20241203
  2. HALAVEN [Suspect]
     Active Substance: ERIBULIN MESYLATE
     Dates: start: 20241210, end: 20250312

REACTIONS (1)
  - Neutropenia [Recovered/Resolved]

NARRATIVE: CASE EVENT DATE: 20241203
